FAERS Safety Report 11726005 (Version 1)
Quarter: 2015Q4

REPORT INFORMATION
  Report Type: Spontaneous
  Country: US (occurrence: US)
  Receive Date: 20151110
  Receipt Date: 20151110
  Transmission Date: 20160304
  Serious: No
  Sender: FDA-Public Use
  Company Number: US-ELI_LILLY_AND_COMPANY-US201110003216

PATIENT
  Age: 68 Year
  Sex: Female

DRUGS (1)
  1. FORTEO [Suspect]
     Active Substance: TERIPARATIDE
     Indication: OSTEOPOROSIS
     Dosage: 20 UG, QD

REACTIONS (9)
  - Weight decreased [Unknown]
  - Muscle spasms [Unknown]
  - Muscle disorder [Unknown]
  - Fear [Unknown]
  - Musculoskeletal disorder [Unknown]
  - Decreased activity [Unknown]
  - Insomnia [Unknown]
  - Malaise [Unknown]
  - Hypophagia [Unknown]

NARRATIVE: CASE EVENT DATE: 201108
